FAERS Safety Report 8546923-3 (Version None)
Quarter: 2012Q3

REPORT INFORMATION
  Report Type: 
  Country: None (occurrence: None)
  Receive Date: 20120727
  Receipt Date: 20120120
  Transmission Date: 20120928
  Serious: No
  Sender: FDA-Public Use
  Company Number: US-ASTRAZENECA-2012SE03891

PATIENT
  Age: 57 Year
  Sex: Male

DRUGS (1)
  1. SEROQUEL XR [Suspect]
     Route: 048

REACTIONS (5)
  - BLOOD TEST ABNORMAL [None]
  - COELIAC DISEASE [None]
  - PROSTATOMEGALY [None]
  - ABDOMINAL PAIN UPPER [None]
  - MALAISE [None]
